FAERS Safety Report 8423885-0 (Version None)
Quarter: 2012Q2

REPORT INFORMATION
  Report Type: 
  Country: None (occurrence: None)
  Receive Date: 20120608
  Receipt Date: 20110523
  Transmission Date: 20120825
  Serious: No
  Sender: FDA-Public Use
  Company Number: US-ASTRAZENECA-2011SE31785

PATIENT
  Sex: Female
  Weight: 76.2 kg

DRUGS (2)
  1. ATACAND [Suspect]
     Indication: ARRHYTHMIA
     Dosage: 1 TABLET DAILY
     Route: 048
     Dates: start: 20080101
  2. TOPROL-XL [Suspect]
     Dosage: 1 TABLET DAILY
     Route: 048
     Dates: start: 20080101

REACTIONS (1)
  - ALANINE AMINOTRANSFERASE INCREASED [None]
